FAERS Safety Report 19080438 (Version 1)
Quarter: 2021Q1

REPORT INFORMATION
  Report Type: Spontaneous
  Country: CA (occurrence: CA)
  Receive Date: 20210331
  Receipt Date: 20210331
  Transmission Date: 20210420
  Serious: Yes (Hospitalization, Other)
  Sender: FDA-Public Use
  Company Number: CA-MYLANLABS-2021M1018991

PATIENT
  Age: 51 Year
  Sex: Male

DRUGS (9)
  1. CLOZAPINE. [Interacting]
     Active Substance: CLOZAPINE
     Dosage: 150 MILLIGRAM
     Route: 065
  2. PFIZER?BIONTECH COVID?19 VACCINE [Interacting]
     Active Substance: TOZINAMERAN
     Indication: PRODUCT USED FOR UNKNOWN INDICATION
     Dosage: UNK
  3. METFORMIN [Concomitant]
     Active Substance: METFORMIN HYDROCHLORIDE
     Dosage: UNK
  4. CLOZAPINE. [Suspect]
     Active Substance: CLOZAPINE
     Indication: SCHIZOAFFECTIVE DISORDER
     Dosage: 500 MILLIGRAM, QD
     Route: 065
  5. CLOZAPINE. [Interacting]
     Active Substance: CLOZAPINE
     Dosage: 300 MILLIGRAM, QD
     Route: 065
  6. DIVALPROEX [Concomitant]
     Active Substance: DIVALPROEX SODIUM
     Dosage: UNK
  7. LINAGLIPTIN [Concomitant]
     Active Substance: LINAGLIPTIN
     Dosage: UNK
  8. FENOFIBRATE. [Concomitant]
     Active Substance: FENOFIBRATE
     Dosage: UNK
  9. PANTOPRAZOLE [Concomitant]
     Active Substance: PANTOPRAZOLE
     Dosage: UNK

REACTIONS (13)
  - Monocyte count increased [Recovering/Resolving]
  - Antipsychotic drug level increased [Recovered/Resolved]
  - Neutrophil count increased [Recovering/Resolving]
  - Pneumonia [Recovering/Resolving]
  - Fall [Unknown]
  - Hydrocephalus [Recovering/Resolving]
  - Atelectasis [Recovering/Resolving]
  - Drug interaction [Recovering/Resolving]
  - Delirium [Recovering/Resolving]
  - Incontinence [Recovering/Resolving]
  - Sedation complication [Recovering/Resolving]
  - C-reactive protein increased [Recovered/Resolved]
  - Lymphocyte count decreased [Recovering/Resolving]
